FAERS Safety Report 10079903 (Version 2)
Quarter: 2014Q2

REPORT INFORMATION
  Report Type: Spontaneous
  Country: AU (occurrence: AU)
  Receive Date: 20140415
  Receipt Date: 20140515
  Transmission Date: 20141212
  Serious: Yes (Death)
  Sender: FDA-Public Use
  Company Number: AU-B.I. PHARMACEUTICALS,INC./RIDGEFIELD-2014-BI-17211AU

PATIENT
  Sex: Female
  Weight: 49 kg

DRUGS (6)
  1. PRADAXA [Suspect]
     Indication: PRODUCT USED FOR UNKNOWN INDICATION
     Dosage: 110 MG
     Route: 065
     Dates: start: 20120302
  2. ALDACTONE [Concomitant]
     Route: 065
  3. ASPIRIN [Concomitant]
     Route: 065
  4. CYMBALTA [Concomitant]
     Route: 065
  5. LIPITOR [Concomitant]
     Route: 065
  6. NEBILET [Concomitant]
     Route: 065

REACTIONS (1)
  - Atrial fibrillation [Fatal]
